FAERS Safety Report 9112472 (Version 2)
Quarter: 2016Q1

REPORT INFORMATION
  Report Type: Report from Study
  Country: US (occurrence: US)
  Receive Date: 20130211
  Receipt Date: 20160111
  Transmission Date: 20160526
  Serious: Yes (Hospitalization)
  Sender: FDA-Public Use
  Company Number: US-ROCHE-1139462

PATIENT
  Age: 92 Year
  Sex: Female
  Weight: 43.58 kg

DRUGS (11)
  1. ZELBORAF [Suspect]
     Active Substance: VEMURAFENIB
     Dosage: THE THERAPY WAS DISONTINUED
     Route: 048
     Dates: start: 20121002
  2. VISMODEGIB [Suspect]
     Active Substance: VISMODEGIB
     Indication: METASTATIC MALIGNANT MELANOMA
     Dosage: 2 PILLS
     Route: 048
     Dates: start: 20120905, end: 20120914
  3. ZELBORAF [Suspect]
     Active Substance: VEMURAFENIB
     Route: 048
     Dates: start: 201209
  4. VISMODEGIB [Suspect]
     Active Substance: VISMODEGIB
     Route: 048
     Dates: start: 201209
  5. ANTACAND (INGREDIENTS UNKNOWN) [Concomitant]
     Indication: DYSPEPSIA
     Route: 048
  6. ZELBORAF [Suspect]
     Active Substance: VEMURAFENIB
     Route: 048
     Dates: start: 20121014
  7. TEMODAR [Concomitant]
     Active Substance: TEMOZOLOMIDE
     Indication: METASTATIC MALIGNANT MELANOMA
     Route: 048
     Dates: end: 201209
  8. ZELBORAF [Suspect]
     Active Substance: VEMURAFENIB
     Indication: METASTATIC MALIGNANT MELANOMA
     Route: 048
     Dates: start: 20120905, end: 20120914
  9. ZELBORAF [Suspect]
     Active Substance: VEMURAFENIB
     Dosage: 7 TABLETS
     Route: 048
     Dates: end: 201301
  10. VISMODEGIB [Suspect]
     Active Substance: VISMODEGIB
     Route: 048
     Dates: start: 20121014
  11. VISMODEGIB [Suspect]
     Active Substance: VISMODEGIB
     Route: 048
     Dates: start: 201301

REACTIONS (16)
  - Throat irritation [Not Recovered/Not Resolved]
  - Oropharyngeal pain [Not Recovered/Not Resolved]
  - Asthenia [Not Recovered/Not Resolved]
  - Asthenia [Unknown]
  - Asthenia [Unknown]
  - Paraesthesia [Unknown]
  - Malaise [Recovered/Resolved]
  - Dysphagia [Recovering/Resolving]
  - Weight decreased [Not Recovered/Not Resolved]
  - Fatigue [Not Recovered/Not Resolved]
  - Anaemia [Unknown]
  - Dyspepsia [Recovering/Resolving]
  - Decreased appetite [Recovered/Resolved]
  - Dyspnoea [Recovering/Resolving]
  - Nausea [Unknown]
  - Disease progression [Not Recovered/Not Resolved]

NARRATIVE: CASE EVENT DATE: 201209
